FAERS Safety Report 13834522 (Version 1)
Quarter: 2017Q3

REPORT INFORMATION
  Report Type: Spontaneous
  Country: MY (occurrence: MY)
  Receive Date: 20170804
  Receipt Date: 20170804
  Transmission Date: 20171127
  Serious: Yes (Other)
  Sender: FDA-Public Use
  Company Number: MY-TORRENT-00000094

PATIENT
  Age: 47 Year
  Sex: Male

DRUGS (1)
  1. LAMITOR [Suspect]
     Active Substance: LAMOTRIGINE

REACTIONS (3)
  - Dermatitis exfoliative [Recovered/Resolved]
  - Rash maculo-papular [Recovered/Resolved]
  - Photosensitivity reaction [Recovered/Resolved]
